FAERS Safety Report 6554630-1 (Version None)
Quarter: 2010Q1

REPORT INFORMATION
  Report Type: 
  Country: None (occurrence: None)
  Receive Date: 20100127
  Receipt Date: 20100117
  Transmission Date: 20100710
  Serious: Yes (Hospitalization)
  Sender: FDA-Public Use
  Company Number: JP-PFIZER INC-2010007382

PATIENT
  Age: 50 Year
  Sex: Female
  Weight: 52.9 kg

DRUGS (13)
  1. CISPLATIN [Suspect]
     Indication: METASTATIC GASTRIC CANCER
     Dosage: 60 MG/M2, 1X/DAY, EVERY 4 WEEKS
     Route: 042
     Dates: start: 20091127
  2. *TS-1 [Suspect]
     Indication: METASTATIC GASTRIC CANCER
     Dosage: 100 MG, 1X/DAY
     Route: 048
     Dates: start: 20091127
  3. SUNITINIB MALATE [Suspect]
     Indication: METASTATIC GASTRIC CANCER
     Dosage: 25 MG, 1X/DAY
     Route: 048
     Dates: start: 20091126
  4. TAKEPRON [Concomitant]
  5. FERRO-GRADUMET [Concomitant]
  6. MAGNESIUM OXIDE [Concomitant]
  7. EBIOS [Concomitant]
  8. SENNOSIDE A+B CALCIUM [Concomitant]
  9. LASIX [Concomitant]
  10. LACTEC [Concomitant]
  11. DECADRON [Concomitant]
  12. KYTRIL [Concomitant]
  13. PRIMPERAN TAB [Concomitant]

REACTIONS (1)
  - BRADYCARDIA [None]
